FAERS Safety Report 6220220-3 (Version None)
Quarter: 2009Q2

REPORT INFORMATION
  Report Type: 
  Country: None (occurrence: None)
  Receive Date: 20090609
  Receipt Date: 20090526
  Transmission Date: 20091009
  Serious: Yes (Hospitalization)
  Sender: FDA-Public Use
  Company Number: CA-ELI_LILLY_AND_COMPANY-CA200905005877

PATIENT
  Age: 68 Year
  Sex: Female

DRUGS (1)
  1. CYMBALTA [Suspect]
     Indication: DEPRESSION
     Dosage: 1 D/F, UNK
     Dates: start: 20080601, end: 20081014

REACTIONS (6)
  - CIRCULATORY COLLAPSE [None]
  - CONTUSION [None]
  - DIZZINESS [None]
  - NASOPHARYNGITIS [None]
  - RASH [None]
  - URTICARIA [None]
